FAERS Safety Report 7133075-X (Version None)
Quarter: 2010Q4

REPORT INFORMATION
  Report Type: 
  Country: None (occurrence: None)
  Receive Date: 20101202
  Receipt Date: 20101129
  Transmission Date: 20110411
  Serious: Yes (Hospitalization)
  Sender: FDA-Public Use
  Company Number: B0684349A

PATIENT
  Sex: Male
  Weight: 132 kg

DRUGS (14)
  1. COMBODART [Suspect]
     Indication: BENIGN PROSTATIC HYPERPLASIA
     Dosage: 1CAP PER DAY
     Route: 065
     Dates: start: 20101012
  2. ATORVASTATIN CALCIUM [Concomitant]
     Dosage: 40MG UNKNOWN
     Route: 048
  3. CO-AMILOFRUSE [Concomitant]
     Route: 048
  4. PERSANTIN [Concomitant]
     Route: 048
  5. CO-CODAMOL [Concomitant]
     Route: 048
  6. VITAMIN B COMPOUND [Concomitant]
     Route: 048
  7. THIAMINE HYDROCHLORIDE [Concomitant]
     Route: 048
  8. OMEPRAZOLE [Concomitant]
     Route: 048
  9. LORATADINE [Concomitant]
     Route: 048
  10. CORACTEN [Concomitant]
     Route: 048
  11. MELOXICAM [Concomitant]
     Route: 048
  12. METFORMIN HYDROCHLORIDE [Concomitant]
     Route: 048
  13. ATENOLOL [Concomitant]
     Route: 048
  14. ASPIRIN [Concomitant]
     Route: 048

REACTIONS (4)
  - ABDOMINAL MASS [None]
  - ABDOMINAL PAIN UPPER [None]
  - GASTRIC CANCER [None]
  - METASTASES TO LIVER [None]
